FAERS Safety Report 13984976 (Version 1)
Quarter: 2017Q3

REPORT INFORMATION
  Report Type: Report from Study
  Country: US (occurrence: US)
  Receive Date: 20170919
  Receipt Date: 20170919
  Transmission Date: 20171128
  Serious: Yes (Hospitalization)
  Sender: FDA-Public Use
  Company Number: US-ACTELION-A-US2016-147572

PATIENT
  Age: 71 Year
  Sex: Male
  Weight: 81.63 kg

DRUGS (11)
  1. SPIRONOLACTONE. [Concomitant]
     Active Substance: SPIRONOLACTONE
  2. TRACLEER [Concomitant]
     Active Substance: BOSENTAN
     Route: 048
  3. METOLAZONE. [Concomitant]
     Active Substance: METOLAZONE
  4. VELETRI [Suspect]
     Active Substance: EPOPROSTENOL
     Indication: PULMONARY ARTERIAL HYPERTENSION
     Dosage: 25 NG/KG, PER MIN
     Route: 042
     Dates: start: 20161121
  5. TRACLEER [Concomitant]
     Active Substance: BOSENTAN
     Route: 048
  6. TYVASO [Concomitant]
     Active Substance: TREPROSTINIL
  7. OXYGEN. [Concomitant]
     Active Substance: OXYGEN
  8. AMLODIPINE [Concomitant]
     Active Substance: AMLODIPINE BESYLATE
  9. REVATIO [Concomitant]
     Active Substance: SILDENAFIL CITRATE
  10. POTASSIUM [Concomitant]
     Active Substance: POTASSIUM
  11. LASIX [Concomitant]
     Active Substance: FUROSEMIDE

REACTIONS (14)
  - Concomitant disease aggravated [Unknown]
  - Catheter site infection [Recovered/Resolved]
  - Culture positive [Recovered/Resolved]
  - Fluid retention [Unknown]
  - Staphylococcal infection [Recovered/Resolved]
  - Catheter site discharge [Recovered/Resolved]
  - Pulmonary arterial hypertension [Unknown]
  - Condition aggravated [Unknown]
  - Chronic obstructive pulmonary disease [Unknown]
  - Paracentesis [Unknown]
  - Renal failure [Unknown]
  - Device dislocation [Recovered/Resolved]
  - Diarrhoea [Not Recovered/Not Resolved]
  - Dyspnoea [Unknown]
